FAERS Safety Report 24890658 (Version 1)
Quarter: 2025Q1

REPORT INFORMATION
  Report Type: Spontaneous
  Country: US (occurrence: US)
  Receive Date: 20250127
  Receipt Date: 20250127
  Transmission Date: 20250409
  Serious: No
  Sender: ELI LILLY AND COMPANY
  Company Number: US-ELI_LILLY_AND_COMPANY-US202501017816

PATIENT
  Age: 75 Year
  Sex: Female

DRUGS (5)
  1. HUMULIN R U-500 [Suspect]
     Active Substance: INSULIN HUMAN
     Indication: Product used for unknown indication
     Route: 065
  2. HUMULIN R U-500 [Suspect]
     Active Substance: INSULIN HUMAN
     Indication: Product used for unknown indication
     Route: 065
  3. HUMULIN R U-500 [Suspect]
     Active Substance: INSULIN HUMAN
     Route: 065
  4. HUMULIN R U-500 [Suspect]
     Active Substance: INSULIN HUMAN
     Route: 065
  5. TRESIBA [Concomitant]
     Active Substance: INSULIN DEGLUDEC
     Indication: Diabetes mellitus

REACTIONS (8)
  - Balance disorder [Unknown]
  - Sensory disturbance [Unknown]
  - Limb mass [Not Recovered/Not Resolved]
  - Intentional dose omission [Unknown]
  - Visual impairment [Not Recovered/Not Resolved]
  - Dizziness [Unknown]
  - Rash [Not Recovered/Not Resolved]
  - Blood glucose decreased [Recovered/Resolved]
